FAERS Safety Report 18746950 (Version 1)
Quarter: 2021Q1

REPORT INFORMATION
  Report Type: Spontaneous
  Country: CN (occurrence: CN)
  Receive Date: 20210115
  Receipt Date: 20210115
  Transmission Date: 20210419
  Serious: Yes (Hospitalization)
  Sender: FDA-Public Use
  Company Number: CN-BAXTER-2021BAX000721

PATIENT
  Age: 8 Year
  Sex: Male
  Weight: 25 kg

DRUGS (4)
  1. ENDOXAN [Suspect]
     Active Substance: CYCLOPHOSPHAMIDE
     Indication: NEPHRITIS
     Dosage: ENDOXAN 0.275 G + 0.9% SODIUM CHLORIDE 100 ML
     Route: 041
     Dates: start: 20210103, end: 20210104
  2. SODIUM CHLORIDE. [Suspect]
     Active Substance: SODIUM CHLORIDE
     Dosage: DOSE RE?INTRODUCED; ENDOXAN + 0.9% SODIUM CHLORIDE
     Route: 041
     Dates: start: 202101
  3. SODIUM CHLORIDE. [Suspect]
     Active Substance: SODIUM CHLORIDE
     Indication: MEDICATION DILUTION
     Dosage: ENDOXAN 0.275 G + 0.9% SODIUM CHLORIDE 100 ML
     Route: 041
     Dates: start: 20200103, end: 20200104
  4. ENDOXAN [Suspect]
     Active Substance: CYCLOPHOSPHAMIDE
     Indication: PURPURA
     Dosage: DOSE RE?INTRODUCED; ENDOXAN + 0.9% SODIUM CHLORIDE
     Route: 041
     Dates: start: 202101

REACTIONS (1)
  - Hypokalaemia [Unknown]

NARRATIVE: CASE EVENT DATE: 20210103
